FAERS Safety Report 24341403 (Version 1)
Quarter: 2024Q3

REPORT INFORMATION
  Report Type: Spontaneous
  Country: CA (occurrence: CA)
  Receive Date: 20240920
  Receipt Date: 20240920
  Transmission Date: 20241016
  Serious: Yes (Other)
  Sender: CELLTRION
  Company Number: CA-CELLTRION INC.-2020CA035393

PATIENT

DRUGS (14)
  1. TRUXIMA [Suspect]
     Active Substance: RITUXIMAB-ABBS
     Indication: Rheumatoid arthritis
     Dosage: 1000 MG, DAY1 AND 15
     Route: 042
     Dates: start: 20201208
  2. TRUXIMA [Suspect]
     Active Substance: RITUXIMAB-ABBS
     Dosage: 1000 MG D1+D15
     Route: 042
     Dates: start: 20201208
  3. TRUXIMA [Suspect]
     Active Substance: RITUXIMAB-ABBS
     Dosage: 1000 MILLIGRAM (2ND INFUSION)
     Route: 042
     Dates: start: 20201208
  4. TRUXIMA [Suspect]
     Active Substance: RITUXIMAB-ABBS
     Dosage: 1000 MG
     Route: 042
     Dates: start: 20201208, end: 20201220
  5. TRUXIMA [Suspect]
     Active Substance: RITUXIMAB-ABBS
     Dosage: 1000 MG
     Route: 042
     Dates: start: 20201208
  6. TRUXIMA [Suspect]
     Active Substance: RITUXIMAB-ABBS
     Dosage: 1000 MG, INFUSION#3
     Route: 042
     Dates: start: 20201208
  7. TRUXIMA [Suspect]
     Active Substance: RITUXIMAB-ABBS
     Dosage: 1000 MG
     Route: 042
     Dates: start: 20201208
  8. TRUXIMA [Suspect]
     Active Substance: RITUXIMAB-ABBS
     Dosage: 1000 MG; INFUSION#4
     Route: 042
     Dates: start: 20201208
  9. BENADRYL [Concomitant]
     Active Substance: DIPHENHYDRAMINE HYDROCHLORIDE
     Indication: Premedication
  10. BENADRYL [Concomitant]
     Active Substance: DIPHENHYDRAMINE HYDROCHLORIDE
     Dosage: 50 MG
  11. TYLENOL [Concomitant]
     Active Substance: ACETAMINOPHEN
     Indication: Premedication
  12. METHYLPREDNISOLONE [Concomitant]
     Active Substance: METHYLPREDNISOLONE
     Indication: Premedication
  13. ACETAMINOPHEN [Concomitant]
     Active Substance: ACETAMINOPHEN
     Indication: Premedication
     Dosage: 650 MG
     Route: 048
  14. SOLU-MEDROL [Concomitant]
     Active Substance: METHYLPREDNISOLONE SODIUM SUCCINATE
     Indication: Premedication
     Dosage: 100 MILLIGRAM

REACTIONS (10)
  - Rheumatoid arthritis [Unknown]
  - Lower respiratory tract infection [Unknown]
  - Chronic obstructive pulmonary disease [Unknown]
  - Infusion related reaction [Unknown]
  - Blood pressure abnormal [Unknown]
  - Headache [Recovering/Resolving]
  - Headache [Recovering/Resolving]
  - Upper respiratory tract infection [Recovered/Resolved]
  - Therapy interrupted [Unknown]
  - Off label use [Unknown]

NARRATIVE: CASE EVENT DATE: 20201208
